FAERS Safety Report 8361116-0 (Version None)
Quarter: 2012Q2

REPORT INFORMATION
  Report Type: 
  Country: None (occurrence: None)
  Receive Date: 20120515
  Receipt Date: 20120410
  Transmission Date: 20120825
  Serious: Yes (Other)
  Sender: FDA-Public Use
  Company Number: US-ROCHE-1036283

PATIENT
  Sex: Male

DRUGS (1)
  1. ZELBORAF [Suspect]
     Indication: PRODUCT USED FOR UNKNOWN INDICATION

REACTIONS (14)
  - VISUAL IMPAIRMENT [None]
  - SKIN PAPILLOMA [None]
  - BLISTER [None]
  - NAUSEA [None]
  - RASH [None]
  - SQUAMOUS CELL CARCINOMA [None]
  - RENAL DISORDER [None]
  - DECREASED APPETITE [None]
  - DIARRHOEA [None]
  - CONSTIPATION [None]
  - FATIGUE [None]
  - STOMATITIS [None]
  - ARTHRALGIA [None]
  - ALOPECIA [None]
